FAERS Safety Report 10818146 (Version 2)
Quarter: 2015Q1

REPORT INFORMATION
  Report Type: Spontaneous
  Country: US (occurrence: US)
  Receive Date: 20150218
  Receipt Date: 20150324
  Transmission Date: 20150721
  Serious: Yes (Hospitalization, Other)
  Sender: FDA-Public Use
  Company Number: US-BAYER-2015-024681

PATIENT
  Age: 30 Year
  Sex: Female
  Weight: 63.49 kg

DRUGS (1)
  1. MIRENA [Suspect]
     Active Substance: LEVONORGESTREL
     Indication: CONTRACEPTION
     Dosage: 20 MCG/24HR, CONT
     Route: 015
     Dates: start: 20140110, end: 20140303

REACTIONS (11)
  - Abdominal pain [Recovered/Resolved]
  - Pelvic pain [Recovered/Resolved]
  - Genital haemorrhage [None]
  - Emotional distress [None]
  - Medical device discomfort [Recovered/Resolved]
  - Uterine perforation [Recovered/Resolved]
  - Injury [Recovered/Resolved]
  - Anxiety [Recovered/Resolved]
  - Internal injury [None]
  - Device issue [None]
  - Depression [None]

NARRATIVE: CASE EVENT DATE: 201401
